FAERS Safety Report 16912970 (Version 1)
Quarter: 2019Q4

REPORT INFORMATION
  Report Type: Spontaneous
  Country: US (occurrence: US)
  Receive Date: 20191014
  Receipt Date: 20191014
  Transmission Date: 20200122
  Serious: Yes (Other)
  Sender: FDA-Public Use
  Company Number: US-HETERO-HET2019US01433

PATIENT
  Age: 55 Year
  Sex: Female

DRUGS (3)
  1. LAMOTRIGINE. [Suspect]
     Active Substance: LAMOTRIGINE
     Indication: BIPOLAR DISORDER
     Dosage: UNK
     Route: 065
  2. LITHIUM. [Suspect]
     Active Substance: LITHIUM
     Indication: BIPOLAR DISORDER
     Dosage: 600 MG, BID
     Route: 065
     Dates: start: 1996
  3. LITHIUM. [Suspect]
     Active Substance: LITHIUM
     Dosage: DOSE WAS DECREASED TO 300MG AT MORNING AND 450MG AT BEDTIME
     Route: 065

REACTIONS (5)
  - Hyperparathyroidism [Recovering/Resolving]
  - Hypothyroidism [Recovering/Resolving]
  - Chronic kidney disease [Unknown]
  - Proteinuria [Unknown]
  - Nephrogenic diabetes insipidus [Unknown]

NARRATIVE: CASE EVENT DATE: 2016
